FAERS Safety Report 5528948-5 (Version None)
Quarter: 2007Q4

REPORT INFORMATION
  Report Type: 
  Country: None (occurrence: None)
  Receive Date: 20071126
  Receipt Date: 20071102
  Transmission Date: 20080405
  Serious: Yes (Hospitalization)
  Sender: FDA-Public Use
  Company Number: 2007S1011278

PATIENT
  Age: 53 Year
  Sex: Female

DRUGS (1)
  1. PIROXICAM [Suspect]
     Indication: HAEMATOMA
     Dosage: 20 MG; DAILY;

REACTIONS (4)
  - ENCEPHALOPATHY [None]
  - GENERAL PHYSICAL HEALTH DETERIORATION [None]
  - HEPATIC FAILURE [None]
  - LIVER TRANSPLANT [None]
